FAERS Safety Report 24542240 (Version 1)
Quarter: 2024Q4

REPORT INFORMATION
  Report Type: Spontaneous
  Country: PL (occurrence: PL)
  Receive Date: 20241023
  Receipt Date: 20241023
  Transmission Date: 20250115
  Serious: Yes (Other)
  Sender: SANOFI AVENTIS
  Company Number: PL-SA-2024SA305347

PATIENT
  Age: 17 Year
  Sex: Male

DRUGS (5)
  1. DUPIXENT [Suspect]
     Active Substance: DUPILUMAB
     Indication: Dermatitis atopic
     Dosage: 300 MG
     Route: 058
     Dates: start: 20240522, end: 20241015
  2. EVASTIX [Concomitant]
     Indication: Rhinitis allergic
     Dosage: 20 MG, QD
     Route: 048
     Dates: start: 202405, end: 202410
  3. EVASTIX [Concomitant]
     Indication: Dermatitis atopic
  4. ALVESCO [Concomitant]
     Active Substance: CICLESONIDE
     Indication: Asthma
     Dosage: 320 MG, BID
     Route: 055
     Dates: start: 202304, end: 202407
  5. SALFLUMIX EASYHALER [Concomitant]
     Indication: Asthma
     Dosage: 500 MG, 1X
     Route: 055
     Dates: start: 202407, end: 202408

REACTIONS (2)
  - Respiratory disorder [Unknown]
  - Condition aggravated [Unknown]

NARRATIVE: CASE EVENT DATE: 20240601
